FAERS Safety Report 9174199 (Version 1)
Quarter: 2013Q1

REPORT INFORMATION
  Report Type: Spontaneous
  Country: US (occurrence: None)
  Receive Date: 20130320
  Receipt Date: 20130320
  Transmission Date: 20140127
  Serious: Yes (Death)
  Sender: FDA-Public Use
  Company Number: None

PATIENT
  Age: 67 Year
  Sex: Male
  Weight: 111.59 kg

DRUGS (2)
  1. METHYLPREDNISOLONE ACETATE [Suspect]
     Indication: SPONDYLOLISTHESIS
     Dosage: 80MG/ML  PRN  EPIDURAL
     Route: 008
     Dates: start: 20120717, end: 20120926
  2. METHYLPREDNISOLONE ACETATE [Suspect]
     Indication: CEREBROVASCULAR STENOSIS
     Dosage: 80MG/ML  PRN  EPIDURAL
     Route: 008
     Dates: start: 20120717, end: 20120926

REACTIONS (3)
  - Meningitis [None]
  - Subarachnoid haemorrhage [None]
  - Product quality issue [None]
